APPROVED DRUG PRODUCT: RAYOS
Active Ingredient: PREDNISONE
Strength: 1MG
Dosage Form/Route: TABLET, DELAYED RELEASE;ORAL
Application: N202020 | Product #001
Applicant: HORIZON THERAPEUTICS USA INC
Approved: Jul 26, 2012 | RLD: Yes | RS: No | Type: DISCN

PATENTS:
Patent 9504699 | Expires: Aug 3, 2027